FAERS Safety Report 12721628 (Version 2)
Quarter: 2016Q4

REPORT INFORMATION
  Report Type: Report from Study
  Country: US (occurrence: US)
  Receive Date: 20160907
  Receipt Date: 20161110
  Transmission Date: 20170207
  Serious: Yes (Death)
  Sender: FDA-Public Use
  Company Number: US-ASTRAZENECA-2016SE85819

PATIENT
  Sex: Female

DRUGS (1)
  1. LYNPARZA [Suspect]
     Active Substance: OLAPARIB
     Indication: BREAST CANCER
     Route: 048
     Dates: start: 20160630

REACTIONS (7)
  - Arthralgia [Unknown]
  - Off label use [Unknown]
  - Malignant neoplasm progression [Fatal]
  - Diarrhoea [Unknown]
  - Product use issue [Unknown]
  - Nausea [Unknown]
  - Fatigue [Unknown]
